FAERS Safety Report 10083370 (Version 3)
Quarter: 2014Q2

REPORT INFORMATION
  Report Type: Spontaneous
  Country: US (occurrence: None)
  Receive Date: 20140415
  Receipt Date: 20140528
  Transmission Date: 20141212
  Serious: Yes (Other)
  Sender: FDA-Public Use
  Company Number: 2014-US-004006

PATIENT
  Age: 72 Year
  Sex: Male

DRUGS (2)
  1. XYREM [Suspect]
     Indication: NARCOLEPSY
     Route: 048
     Dates: start: 200906
  2. XYREM [Suspect]
     Indication: CATAPLEXY
     Route: 048
     Dates: start: 200906

REACTIONS (2)
  - Cardiac operation [None]
  - Peripheral swelling [None]
